FAERS Safety Report 4983546-7 (Version None)
Quarter: 2006Q2

REPORT INFORMATION
  Report Type: 
  Country: None (occurrence: None)
  Receive Date: 20060425
  Receipt Date: 20060425
  Transmission Date: 20061013
  Serious: Yes (Other)
  Sender: FDA-Public Use
  Company Number: None

PATIENT
  Age: 78 Year
  Sex: Male
  Weight: 85.3 kg

DRUGS (6)
  1. AGGRENOX [Suspect]
  2. METFORMIN HYDROCHLORIDE [Concomitant]
  3. ASPIRIN / DIPYRIDAMOLE [Concomitant]
  4. LISINOPRIL [Concomitant]
  5. CLOPIDOGREL BISULFATE [Concomitant]
  6. SIMVASTATIN [Concomitant]

REACTIONS (1)
  - VERTIGO [None]
